FAERS Safety Report 4284700-2 (Version None)
Quarter: 2004Q1

REPORT INFORMATION
  Report Type: 
  Country: None (occurrence: None)
  Receive Date: 20040130
  Receipt Date: 20040109
  Transmission Date: 20041129
  Serious: Yes (Other)
  Sender: FDA-Public Use
  Company Number: S03-FRA-05358-01

PATIENT
  Age: 87 Year
  Sex: Female

DRUGS (7)
  1. EBIXA (MEMANTINE) [Suspect]
     Dates: start: 20030304, end: 20031201
  2. TANAKAN (GINGKO BILOBA) [Concomitant]
  3. ANTIDIURETIC DRUGS [Concomitant]
  4. BISOPROLOL FUMARATE [Concomitant]
  5. LISINOPRIL [Concomitant]
  6. PRAZOSIN HCL [Concomitant]
  7. KARDEGIC (ACETYLSALICYLATE LYSINE) [Concomitant]

REACTIONS (1)
  - RENAL FAILURE [None]
